FAERS Safety Report 5109500-2 (Version None)
Quarter: 2006Q3

REPORT INFORMATION
  Report Type: 
  Country: None (occurrence: None)
  Receive Date: 20060918
  Receipt Date: 20060906
  Transmission Date: 20061208
  Serious: Yes (Other)
  Sender: FDA-Public Use
  Company Number: 2006107997

PATIENT
  Sex: Male

DRUGS (2)
  1. GABAPENTIN [Suspect]
     Indication: NEURALGIA
  2. PREGABALIN (PREGABALIN) [Suspect]
     Indication: NEURALGIA

REACTIONS (1)
  - NEUTROPENIA [None]
